FAERS Safety Report 25690593 (Version 1)
Quarter: 2025Q3

REPORT INFORMATION
  Report Type: Spontaneous
  Country: CN (occurrence: CN)
  Receive Date: 20250818
  Receipt Date: 20250818
  Transmission Date: 20251021
  Serious: Yes (Hospitalization, Other)
  Sender: EXELA PHARMA SCIENCES
  Company Number: CN-EXELAPHARMA-2025EXLA00158

PATIENT
  Age: 9 Year
  Sex: Female

DRUGS (16)
  1. ACETYLCYSTEINE [Suspect]
     Active Substance: ACETYLCYSTEINE
     Indication: Immune thrombocytopenia
  2. RITUXIMAB [Concomitant]
     Active Substance: RITUXIMAB
  3. SIROLIMUS [Concomitant]
     Active Substance: SIROLIMUS
  4. POSACONAZOLE [Concomitant]
     Active Substance: POSACONAZOLE
  5. CYCLOSPORINE [Concomitant]
     Active Substance: CYCLOSPORINE
  6. PREDNISOLONE [Concomitant]
     Active Substance: PREDNISOLONE
     Dosage: 2 MG/KG/DAY -14 DAYS
  7. PREDNISOLONE [Concomitant]
     Active Substance: PREDNISOLONE
     Dosage: TAPERED TO 0.4MG/KG/DAY MAINTENANC
  8. HUMAN IMMUNOGLOBULIN G [Concomitant]
     Active Substance: HUMAN IMMUNOGLOBULIN G
     Indication: Hypogammaglobulinaemia
     Dosage: 1G/KG -12 DOSES
  9. HUMAN IMMUNOGLOBULIN G [Concomitant]
     Active Substance: HUMAN IMMUNOGLOBULIN G
  10. ELTROMBOPAG [Concomitant]
     Active Substance: ELTROMBOPAG
  11. AVATROMBOPAG [Concomitant]
     Active Substance: AVATROMBOPAG
     Dosage: 30 MG/DAY -1 MONTH
  12. ROMIPLOSTIM [Concomitant]
     Active Substance: ROMIPLOSTIM
     Dosage: 10IU/KG/WEEK - 8 DOSES
  13. OSELTAMIVIR [Concomitant]
     Active Substance: OSELTAMIVIR
     Dosage: 75MG BID - 8DAYS
  14. DECITABINE [Concomitant]
     Active Substance: DECITABINE
  15. CEFOPERAZONE\SULBACTAM [Concomitant]
     Active Substance: CEFOPERAZONE\SULBACTAM
     Indication: Bacterial infection
  16. Lymphocyte infusion [Concomitant]

REACTIONS (1)
  - Drug ineffective for unapproved indication [Unknown]
